FAERS Safety Report 18273063 (Version 1)
Quarter: 2020Q3

REPORT INFORMATION
  Report Type: Spontaneous
  Country: LB (occurrence: LB)
  Receive Date: 20200916
  Receipt Date: 20200916
  Transmission Date: 20201103
  Serious: Yes (Other)
  Sender: FDA-Public Use
  Company Number: LB-B.I. PHARMACEUTICALS,INC./RIDGEFIELD-2020-BI-046193

PATIENT
  Age: 84 Year
  Sex: Female

DRUGS (1)
  1. PRADAXA [Suspect]
     Active Substance: DABIGATRAN ETEXILATE MESYLATE
     Indication: ATRIAL FIBRILLATION
     Dates: start: 2015, end: 20200903

REACTIONS (4)
  - Fall [Recovered/Resolved]
  - Pelvic fracture [Recovered/Resolved]
  - Splenic rupture [Recovered/Resolved]
  - Haemothorax [Recovered/Resolved]

NARRATIVE: CASE EVENT DATE: 20200901
